FAERS Safety Report 24952882 (Version 1)
Quarter: 2025Q1

REPORT INFORMATION
  Report Type: Spontaneous
  Country: CA (occurrence: CA)
  Receive Date: 20250211
  Receipt Date: 20250211
  Transmission Date: 20250409
  Serious: Yes (Other)
  Sender: TAKEDA
  Company Number: CA-TAKEDA-2025TUS010312

PATIENT
  Age: 29 Year
  Sex: Male
  Weight: 69 kg

DRUGS (27)
  1. VYVANSE [Suspect]
     Active Substance: LISDEXAMFETAMINE DIMESYLATE
     Indication: Product used for unknown indication
  2. INFLECTRA [Suspect]
     Active Substance: INFLIXIMAB-DYYB
     Indication: Colitis ulcerative
  3. INFLECTRA [Suspect]
     Active Substance: INFLIXIMAB-DYYB
     Dates: start: 20210720, end: 20210720
  4. INFLECTRA [Suspect]
     Active Substance: INFLIXIMAB-DYYB
  5. INFLECTRA [Suspect]
     Active Substance: INFLIXIMAB-DYYB
  6. INFLECTRA [Suspect]
     Active Substance: INFLIXIMAB-DYYB
  7. INFLECTRA [Suspect]
     Active Substance: INFLIXIMAB-DYYB
  8. INFLECTRA [Suspect]
     Active Substance: INFLIXIMAB-DYYB
     Dates: start: 20220427, end: 20220427
  9. INFLECTRA [Suspect]
     Active Substance: INFLIXIMAB-DYYB
  10. INFLECTRA [Suspect]
     Active Substance: INFLIXIMAB-DYYB
  11. INFLECTRA [Suspect]
     Active Substance: INFLIXIMAB-DYYB
  12. INFLECTRA [Suspect]
     Active Substance: INFLIXIMAB-DYYB
  13. INFLECTRA [Suspect]
     Active Substance: INFLIXIMAB-DYYB
     Dosage: 7.5 MILLIGRAM/KILOGRAM, Q8WEEKS
     Dates: start: 20230216, end: 20230216
  14. INFLECTRA [Suspect]
     Active Substance: INFLIXIMAB-DYYB
  15. INFLECTRA [Suspect]
     Active Substance: INFLIXIMAB-DYYB
     Dosage: 660 MILLIGRAM, Q8WEEKS
     Dates: start: 20230615
  16. INFLECTRA [Suspect]
     Active Substance: INFLIXIMAB-DYYB
     Dosage: 7500 MILLIGRAM, Q8WEEKS
     Dates: start: 20230810
  17. INFLECTRA [Suspect]
     Active Substance: INFLIXIMAB-DYYB
     Dates: start: 20231006, end: 20231006
  18. INFLECTRA [Suspect]
     Active Substance: INFLIXIMAB-DYYB
  19. INFLECTRA [Suspect]
     Active Substance: INFLIXIMAB-DYYB
     Dates: start: 20240110, end: 20240110
  20. INFLECTRA [Suspect]
     Active Substance: INFLIXIMAB-DYYB
  21. INFLECTRA [Suspect]
     Active Substance: INFLIXIMAB-DYYB
     Dosage: 5 MILLIGRAM/KILOGRAM, Q4WEEKS
     Dates: start: 20241212
  22. INFLECTRA [Suspect]
     Active Substance: INFLIXIMAB-DYYB
  23. METHOTREXATE [Concomitant]
     Active Substance: METHOTREXATE
  24. PREDNISONE [Concomitant]
     Active Substance: PREDNISONE
  25. METHYLPHENIDATE HYDROCHLORIDE [Concomitant]
     Active Substance: METHYLPHENIDATE HYDROCHLORIDE
  26. TRAZODONE [Concomitant]
     Active Substance: TRAZODONE HYDROCHLORIDE
  27. VENLAFAXINE [Concomitant]
     Active Substance: VENLAFAXINE HYDROCHLORIDE

REACTIONS (8)
  - Pneumonia bacterial [Recovered/Resolved]
  - Colitis ulcerative [Recovering/Resolving]
  - Hypertension [Not Recovered/Not Resolved]
  - Off label use [Unknown]
  - Inappropriate schedule of product administration [Unknown]
  - Weight increased [Not Recovered/Not Resolved]
  - COVID-19 [Not Recovered/Not Resolved]
  - Body temperature increased [Recovered/Resolved]

NARRATIVE: CASE EVENT DATE: 20210706
